FAERS Safety Report 10240111 (Version 1)
Quarter: 2014Q2

REPORT INFORMATION
  Report Type: Spontaneous
  Country: GB (occurrence: GB)
  Receive Date: 20140617
  Receipt Date: 20140617
  Transmission Date: 20141212
  Serious: Yes (Life-Threatening)
  Sender: FDA-Public Use
  Company Number: GB-ROCHE-1418470

PATIENT
  Age: 61 Year
  Sex: 0

DRUGS (15)
  1. MABTHERA [Suspect]
     Indication: GRANULOMATOSIS WITH POLYANGIITIS
     Route: 065
  2. CYCLOPHOSPHAMIDE [Suspect]
     Indication: GRANULOMATOSIS WITH POLYANGIITIS
     Route: 065
  3. ACETYLCYSTEINE [Concomitant]
     Dosage: 2G/10ML SOLUTION FOR INFUSION AMPOULES
     Route: 050
  4. IPRATROPIUM [Concomitant]
     Dosage: 250MICROGRAMS/1ML NEBULISER LIQUID STERI-NEB UNIT DOSE VI
     Route: 065
  5. SALBUTAMOL [Concomitant]
     Dosage: 2.5MG/2.5ML NEBULISER LIQUID UNIT DOSE VIALS
     Route: 065
  6. SODIUM CHLORIDE [Concomitant]
     Dosage: 0.9% NEBULISER LIQUID 2.5ML UNIT DOSE VIALS
     Route: 065
  7. ALENDRONIC ACID [Concomitant]
     Route: 065
  8. CITALOPRAM [Concomitant]
     Route: 065
  9. CO-TRIMOXAZOLE [Concomitant]
     Route: 065
  10. HYDROXOCOBALAMIN [Concomitant]
     Dosage: MAINTENANCE DOSE
     Route: 065
  11. LANSOPRAZOLE [Concomitant]
     Route: 065
  12. LEVOTHYROXINE [Concomitant]
     Route: 065
  13. LOSARTAN [Concomitant]
     Route: 065
  14. ONDANSETRON [Concomitant]
     Dosage: 8MG TWICE DAILY AS NECESSARY.
     Route: 065
  15. PREDNISOLONE [Concomitant]
     Dosage: LONG TERM THERAPY
     Route: 065

REACTIONS (1)
  - Pulmonary embolism [Unknown]
